FAERS Safety Report 8144327-9 (Version None)
Quarter: 2012Q1

REPORT INFORMATION
  Report Type: 
  Country: None (occurrence: None)
  Receive Date: 20120217
  Receipt Date: 20120207
  Transmission Date: 20120608
  Serious: Yes (Other)
  Sender: FDA-Public Use
  Company Number: US-JNJFOC-20120204135

PATIENT
  Sex: Female

DRUGS (1)
  1. STELARA [Suspect]
     Indication: PSORIASIS
     Route: 058
     Dates: start: 20100101, end: 20110101

REACTIONS (4)
  - PSORIASIS [None]
  - NERVE COMPRESSION [None]
  - DRUG DOSE OMISSION [None]
  - CARPAL TUNNEL DECOMPRESSION [None]
